FAERS Safety Report 13465266 (Version 1)
Quarter: 2017Q2

REPORT INFORMATION
  Report Type: Spontaneous
  Country: US (occurrence: US)
  Receive Date: 20170421
  Receipt Date: 20170421
  Transmission Date: 20170830
  Serious: No
  Sender: FDA-Public Use
  Company Number: US-JNJFOC-20170416959

PATIENT
  Sex: Male

DRUGS (6)
  1. RISPERDAL [Suspect]
     Active Substance: RISPERIDONE
     Indication: MOOD SWINGS
     Route: 048
     Dates: start: 2008, end: 200802
  2. RISPERDAL [Suspect]
     Active Substance: RISPERIDONE
     Indication: IRRITABILITY
     Route: 048
  3. COGENTIN [Suspect]
     Active Substance: BENZTROPINE MESYLATE
     Indication: MOVEMENT DISORDER
     Route: 065
  4. COGENTIN [Suspect]
     Active Substance: BENZTROPINE MESYLATE
     Indication: MOVEMENT DISORDER
     Route: 065
     Dates: end: 200802
  5. RISPERDAL [Suspect]
     Active Substance: RISPERIDONE
     Indication: MOOD SWINGS
     Route: 048
  6. RISPERDAL [Suspect]
     Active Substance: RISPERIDONE
     Indication: IRRITABILITY
     Route: 048
     Dates: start: 2008, end: 200802

REACTIONS (4)
  - Product use in unapproved indication [Unknown]
  - Off label use [Unknown]
  - Weight increased [Unknown]
  - Dyskinesia [Unknown]

NARRATIVE: CASE EVENT DATE: 2008
